FAERS Safety Report 12118840 (Version 1)
Quarter: 2016Q1

REPORT INFORMATION
  Report Type: Spontaneous
  Country: CA (occurrence: CA)
  Receive Date: 20160226
  Receipt Date: 20160226
  Transmission Date: 20160526
  Serious: Yes (Death)
  Sender: FDA-Public Use
  Company Number: CA-TEVA-637511ACC

PATIENT
  Age: 93 Year
  Sex: Female

DRUGS (2)
  1. RISPERIDONE. [Suspect]
     Active Substance: RISPERIDONE
     Indication: DEMENTIA
     Dosage: .25 MILLIGRAM DAILY;
     Route: 048
  2. ALTACE [Concomitant]
     Active Substance: RAMIPRIL

REACTIONS (6)
  - Reading disorder [Fatal]
  - Cerebrovascular accident [Fatal]
  - Dysstasia [Fatal]
  - Fatigue [Fatal]
  - Fall [Fatal]
  - Dysarthria [Fatal]
